FAERS Safety Report 5842789-0 (Version None)
Quarter: 2008Q3

REPORT INFORMATION
  Report Type: 
  Country: None (occurrence: None)
  Receive Date: 20080811
  Receipt Date: 20080804
  Transmission Date: 20090109
  Serious: Yes (Hospitalization)
  Sender: FDA-Public Use
  Company Number: PAR_02284_2008

PATIENT
  Sex: Male
  Weight: 104.7809 kg

DRUGS (11)
  1. QUESTRAN [Suspect]
     Indication: CROHN'S DISEASE
     Dosage: DF
  2. REMICADE [Suspect]
     Indication: CROHN'S DISEASE
     Dosage: SEE IMAGE
     Route: 042
     Dates: start: 19990617
  3. REMICADE [Suspect]
     Indication: CROHN'S DISEASE
     Dosage: SEE IMAGE
     Route: 042
     Dates: start: 19991116
  4. REMICADE [Suspect]
     Indication: CROHN'S DISEASE
     Dosage: SEE IMAGE
     Route: 042
     Dates: start: 20010118
  5. REMICADE [Suspect]
     Indication: CROHN'S DISEASE
     Dosage: SEE IMAGE
     Route: 042
     Dates: start: 20010806
  6. BUDESONIDE [Suspect]
     Indication: CROHN'S DISEASE
     Dosage: DF
  7. IMODIUM [Suspect]
     Indication: CROHN'S DISEASE
     Dosage: DF
  8. PREVACID [Suspect]
     Indication: CROHN'S DISEASE
     Dosage: DF
  9. ADALIMUMAB [Suspect]
     Indication: CROHN'S DISEASE
     Dosage: DF
  10. LOMOTIL [Suspect]
     Indication: CROHN'S DISEASE
     Dosage: DF
  11. ACETAMINOPHEN [Concomitant]

REACTIONS (8)
  - ABDOMINAL PAIN [None]
  - DEHYDRATION [None]
  - DIARRHOEA [None]
  - ELECTROLYTE IMBALANCE [None]
  - GASTROINTESTINAL STOMA COMPLICATION [None]
  - INFUSION RELATED REACTION [None]
  - NAUSEA [None]
  - RASH [None]
